FAERS Safety Report 10380890 (Version 1)
Quarter: 2014Q3

REPORT INFORMATION
  Report Type: Spontaneous
  Country: US (occurrence: None)
  Receive Date: 20140808
  Receipt Date: 20140808
  Transmission Date: 20150326
  Serious: Yes (Other)
  Sender: FDA-Public Use
  Company Number: 2014AP003724

PATIENT
  Age: 23 Year
  Sex: Male

DRUGS (8)
  1. ZIPRASIDONE HCL [Suspect]
     Active Substance: ZIPRASIDONE HYDROCHLORIDE
     Indication: SCHIZOAFFECTIVE DISORDER
     Route: 048
  2. LITHIUM [Suspect]
     Active Substance: LITHIUM CARBONATE
     Route: 048
  3. PALIPERIDONE [Suspect]
     Active Substance: PALIPERIDONE
     Indication: SCHIZOAFFECTIVE DISORDER
     Dosage: 3 MG ORAL QD THEN TITRATED TO 9MG ORAL DAILY
     Route: 048
  4. QUETIAPINE FUMARATE. [Suspect]
     Active Substance: QUETIAPINE FUMARATE
     Indication: SCHIZOAFFECTIVE DISORDER
     Dosage: QAM
     Route: 048
  5. HALOPERIDOL. [Suspect]
     Active Substance: HALOPERIDOL
     Indication: SCHIZOAFFECTIVE DISORDER
     Route: 048
  6. RISPERIDONE. [Concomitant]
     Active Substance: RISPERIDONE
  7. VALPROIC ACID /00228502/ (VALPROATE SODIUM) [Concomitant]
  8. BENZATROPINE [Concomitant]
     Active Substance: BENZTROPINE

REACTIONS (9)
  - Fatigue [None]
  - Somnolence [None]
  - Dyspnoea [None]
  - Alanine aminotransferase increased [None]
  - Rhabdomyolysis [None]
  - Muscle rigidity [None]
  - Aspartate aminotransferase increased [None]
  - Treatment noncompliance [None]
  - Tachypnoea [None]
